FAERS Safety Report 7493372-5 (Version None)
Quarter: 2011Q2

REPORT INFORMATION
  Report Type: 
  Country: None (occurrence: None)
  Receive Date: 20110520
  Receipt Date: 20110507
  Transmission Date: 20111010
  Serious: Yes (Hospitalization)
  Sender: FDA-Public Use
  Company Number: CA-ELI_LILLY_AND_COMPANY-CA201105002537

PATIENT
  Age: 61 Year
  Sex: Male

DRUGS (1)
  1. ZYPREXA ZYDIS [Suspect]
     Dosage: UNK
     Dates: start: 19950101

REACTIONS (2)
  - HOSPITALISATION [None]
  - DIABETES MELLITUS [None]
